FAERS Safety Report 21228450 (Version 1)
Quarter: 2022Q3

REPORT INFORMATION
  Report Type: Spontaneous
  Country: US (occurrence: US)
  Receive Date: 20220818
  Receipt Date: 20220818
  Transmission Date: 20221027
  Serious: Yes (Other)
  Sender: FDA-Public Use
  Company Number: US-PFIZER INC-202201065370

PATIENT
  Age: 72 Year
  Sex: Male

DRUGS (1)
  1. SPIRONOLACTONE [Suspect]
     Active Substance: SPIRONOLACTONE
     Dosage: UNK, ALTERNATE DAY

REACTIONS (3)
  - Neuropathy peripheral [Unknown]
  - Gout [Recovering/Resolving]
  - Inappropriate schedule of product administration [Unknown]
